FAERS Safety Report 16626735 (Version 1)
Quarter: 2019Q3

REPORT INFORMATION
  Report Type: Report from Study
  Country: US (occurrence: US)
  Receive Date: 20190724
  Receipt Date: 20190724
  Transmission Date: 20191004
  Serious: Yes (Hospitalization)
  Sender: FDA-Public Use
  Company Number: US-BAUSCH-BL-2019-020993

PATIENT
  Sex: Male

DRUGS (2)
  1. XIFAXAN [Suspect]
     Active Substance: RIFAXIMIN
     Indication: HEPATIC ENCEPHALOPATHY
     Route: 065
  2. LACTULOSE. [Suspect]
     Active Substance: LACTULOSE
     Indication: HEPATIC ENCEPHALOPATHY
     Route: 065

REACTIONS (2)
  - Hepatic lesion [Recovering/Resolving]
  - Hepatic cirrhosis [Recovering/Resolving]
